FAERS Safety Report 9038143 (Version 1)
Quarter: 2013Q1

REPORT INFORMATION
  Report Type: Spontaneous
  Country: US (occurrence: US)
  Receive Date: 20130129
  Receipt Date: 20130129
  Transmission Date: 20140127
  Serious: No
  Sender: FDA-Public Use
  Company Number: US-GLAXOSMITHKLINE-A0965224A

PATIENT
  Sex: Female

DRUGS (1)
  1. BUPROPION HCL [Suspect]
     Route: 065

REACTIONS (2)
  - Drug ineffective [Recovered/Resolved]
  - Therapeutic response unexpected with drug substitution [Recovered/Resolved]
